FAERS Safety Report 13000371 (Version 1)
Quarter: 2016Q4

REPORT INFORMATION
  Report Type: Spontaneous
  Country: US (occurrence: US)
  Receive Date: 20161206
  Receipt Date: 20161206
  Transmission Date: 20170207
  Serious: No
  Sender: FDA-Public Use
  Company Number: US-009507513-1611USA013058

PATIENT
  Age: 74 Year
  Sex: Female

DRUGS (2)
  1. CVS IRON [Concomitant]
     Dosage: 1 DF, QD
     Route: 048
     Dates: start: 20110516
  2. ZOCOR [Suspect]
     Active Substance: SIMVASTATIN
     Dosage: UNK
     Route: 048

REACTIONS (3)
  - Disorientation [Unknown]
  - Pain in extremity [Unknown]
  - Anger [Unknown]

NARRATIVE: CASE EVENT DATE: 20120206
